FAERS Safety Report 12863785 (Version 3)
Quarter: 2018Q4

REPORT INFORMATION
  Report Type: Spontaneous
  Country: CZ (occurrence: CZ)
  Receive Date: 20161019
  Receipt Date: 20181119
  Transmission Date: 20190204
  Serious: Yes (Death, Life-Threatening, Hospitalization, Other)
  Sender: FDA-Public Use
  Company Number: PHHY2016CZ140645

PATIENT
  Age: 86 Year
  Sex: Female

DRUGS (1)
  1. METFORMIN [Suspect]
     Active Substance: METFORMIN HYDROCHLORIDE
     Indication: TYPE 2 DIABETES MELLITUS
     Route: 065

REACTIONS (31)
  - Pyrexia [Fatal]
  - Coagulopathy [Unknown]
  - Haemodynamic instability [Fatal]
  - Tachypnoea [Unknown]
  - Hyperlactacidaemia [Recovering/Resolving]
  - Muscular weakness [Unknown]
  - Dyspnoea [Unknown]
  - Multiple organ dysfunction syndrome [Fatal]
  - Septic shock [Fatal]
  - Vasoplegia syndrome [Fatal]
  - Sinus tachycardia [Unknown]
  - Cardiovascular disorder [Fatal]
  - Hypersomnia [Unknown]
  - Encephalopathy [Unknown]
  - Metabolic acidosis [Recovering/Resolving]
  - Systemic infection [Recovering/Resolving]
  - Acute kidney injury [Fatal]
  - Gastrointestinal disorder [Fatal]
  - Anuria [Fatal]
  - Deep vein thrombosis [Unknown]
  - Cough [Unknown]
  - Dyspnoea at rest [Unknown]
  - Thrombocytopenia [Fatal]
  - Lactic acidosis [Fatal]
  - Respiratory failure [Fatal]
  - Hypotension [Unknown]
  - Somnolence [Unknown]
  - Liver injury [Fatal]
  - Coma [Unknown]
  - Disorientation [Unknown]
  - Dehydration [Unknown]

NARRATIVE: CASE EVENT DATE: 201404
